FAERS Safety Report 5418953-1 (Version None)
Quarter: 2007Q3

REPORT INFORMATION
  Report Type: 
  Country: None (occurrence: None)
  Receive Date: 20070817
  Receipt Date: 20070806
  Transmission Date: 20080115
  Serious: Yes (Other)
  Sender: FDA-Public Use
  Company Number: US-PFIZER INC-2007065784

PATIENT
  Sex: Female
  Weight: 65.8 kg

DRUGS (3)
  1. LYRICA [Suspect]
     Indication: FIBROMYALGIA
  2. TYLENOL [Concomitant]
  3. VICODIN [Concomitant]

REACTIONS (9)
  - ANXIETY [None]
  - BACK DISORDER [None]
  - DRUG DOSE OMISSION [None]
  - EYE PAIN [None]
  - FEELING OF BODY TEMPERATURE CHANGE [None]
  - HEADACHE [None]
  - INSOMNIA [None]
  - INTERVERTEBRAL DISC PROTRUSION [None]
  - NAUSEA [None]
